FAERS Safety Report 4438508-5 (Version None)
Quarter: 2004Q3

REPORT INFORMATION
  Report Type: 
  Country: None (occurrence: None)
  Receive Date: 20040831
  Receipt Date: 20040825
  Transmission Date: 20050211
  Serious: Yes (Hospitalization)
  Sender: FDA-Public Use
  Company Number: PL-MERCK-0408POL00006

PATIENT
  Sex: Female
  Weight: 75 kg

DRUGS (1)
  1. TRUSOPT [Suspect]
     Indication: GLAUCOMA
     Route: 047
     Dates: start: 20030806, end: 20040714

REACTIONS (3)
  - CILIARY BODY DISORDER [None]
  - CONJUNCTIVAL OEDEMA [None]
  - CORNEAL LESION [None]
